FAERS Safety Report 16641210 (Version 1)
Quarter: 2019Q3

REPORT INFORMATION
  Report Type: Spontaneous
  Country: US (occurrence: US)
  Receive Date: 20190729
  Receipt Date: 20190729
  Transmission Date: 20191004
  Serious: No
  Sender: FDA-Public Use
  Company Number: US-ASTRAZENECA-2019SF07039

PATIENT
  Age: 66 Year
  Sex: Female

DRUGS (1)
  1. PRILOSEC OTC [Suspect]
     Active Substance: OMEPRAZOLE MAGNESIUM
     Route: 048
     Dates: end: 20190708

REACTIONS (3)
  - Vertigo [Recovered/Resolved]
  - Dizziness [Recovering/Resolving]
  - Dyspepsia [Recovered/Resolved]
